FAERS Safety Report 5079590-4 (Version None)
Quarter: 2006Q3

REPORT INFORMATION
  Report Type: 
  Country: None (occurrence: None)
  Receive Date: 20060808
  Receipt Date: 20060719
  Transmission Date: 20061208
  Serious: Yes (Hospitalization)
  Sender: FDA-Public Use
  Company Number: US200607003353

PATIENT
  Age: 64 Year
  Sex: Female

DRUGS (2)
  1. HUMULIN 70/30 [Suspect]
     Indication: DIABETES MELLITUS
     Dates: start: 20031201, end: 20040401
  2. SYNTHROID [Concomitant]

REACTIONS (3)
  - CALCIUM METABOLISM DISORDER [None]
  - MUSCLE SPASMS [None]
  - THYROID ADENOMA [None]
